FAERS Safety Report 24910781 (Version 1)
Quarter: 2025Q1

REPORT INFORMATION
  Report Type: Spontaneous
  Country: BY (occurrence: BY)
  Receive Date: 20250131
  Receipt Date: 20250131
  Transmission Date: 20250409
  Serious: Yes (Death)
  Sender: JOHNSON AND JOHNSON
  Company Number: BY-JNJFOC-20250167529

PATIENT
  Sex: Male
  Weight: 54 kg

DRUGS (11)
  1. SIRTURO [Suspect]
     Active Substance: BEDAQUILINE FUMARATE
     Indication: Tuberculosis
     Dosage: 2 WEEKS
     Route: 048
     Dates: start: 20230320
  2. SIRTURO [Suspect]
     Active Substance: BEDAQUILINE FUMARATE
     Route: 048
     Dates: end: 20230913
  3. PRETOMANID [Suspect]
     Active Substance: PRETOMANID
     Indication: Tuberculosis
     Route: 048
     Dates: start: 20230320, end: 20230913
  4. LINEZOLID [Suspect]
     Active Substance: LINEZOLID
     Indication: Tuberculosis
     Dosage: 112 DOSES
  5. LINEZOLID [Suspect]
     Active Substance: LINEZOLID
     Dates: start: 20230320, end: 20230913
  6. MOXIFLOXACIN [Suspect]
     Active Substance: MOXIFLOXACIN
     Indication: Tuberculosis
     Dates: start: 20230320, end: 20230913
  7. OMEPRAZOLE [Concomitant]
     Active Substance: OMEPRAZOLE
     Indication: Prophylaxis
     Dates: start: 20230216, end: 20230913
  8. ANALGINA [Concomitant]
     Dates: start: 20230302, end: 20240528
  9. NAPROXEN [Concomitant]
     Active Substance: NAPROXEN
     Indication: Bladder cancer
     Dates: start: 20240425, end: 20240622
  10. BISOPROLOL [Concomitant]
     Active Substance: BISOPROLOL
     Indication: Myocardial ischaemia
     Dates: start: 20231221
  11. TRAMADOL [Concomitant]
     Active Substance: TRAMADOL
     Indication: Bladder cancer
     Dates: start: 20230622, end: 20240828

REACTIONS (1)
  - Bladder cancer [Fatal]

NARRATIVE: CASE EVENT DATE: 20240729
